FAERS Safety Report 8354897-3 (Version None)
Quarter: 2012Q2

REPORT INFORMATION
  Report Type: 
  Country: None (occurrence: None)
  Receive Date: 20120511
  Receipt Date: 20120502
  Transmission Date: 20120825
  Serious: Yes (Hospitalization)
  Sender: FDA-Public Use
  Company Number: IN-PERRIGO-12IN003964

PATIENT
  Age: 3 Year
  Sex: Male

DRUGS (1)
  1. PODOFILOX [Suspect]
     Indication: ACCIDENTAL EXPOSURE
     Dosage: UNK, SINGLE
     Route: 048

REACTIONS (13)
  - RESPIRATORY FAILURE [None]
  - VOMITING [None]
  - NUCLEAR MAGNETIC RESONANCE IMAGING BRAIN ABNORMAL [None]
  - QUADRIPARESIS [None]
  - DEPRESSED LEVEL OF CONSCIOUSNESS [None]
  - HYPOTONIA [None]
  - ACCIDENTAL EXPOSURE [None]
  - HYPERVENTILATION [None]
  - NEUROPATHY PERIPHERAL [None]
  - RESPIRATORY ALKALOSIS [None]
  - HYPOCALCAEMIA [None]
  - STATUS EPILEPTICUS [None]
  - HYPOREFLEXIA [None]
